FAERS Safety Report 8707871 (Version 2)
Quarter: 2012Q4

REPORT INFORMATION
  Report Type: 
  Country: US (occurrence: US)
  Receive Date: 20120806
  Receipt Date: 20120910
  Transmission Date: 20130627
  Serious: No
  Sender: FDA-Public Use
  Company Number: US-PFIZER INC-2012186841

PATIENT
  Sex: Male

DRUGS (3)
  1. LYRICA [Suspect]
     Indication: ARTHRALGIA
     Dosage: UNK
     Route: 048
     Dates: start: 201206, end: 20120723
  2. LYRICA [Suspect]
     Indication: MYALGIA
  3. DICLOFENAC [Concomitant]
     Indication: ARTHRITIS
     Dosage: 50 mg, 3x/day
     Route: 048
     Dates: start: 2000

REACTIONS (3)
  - Myalgia [Recovering/Resolving]
  - Arthralgia [Recovering/Resolving]
  - Inflammation [Recovering/Resolving]
